FAERS Safety Report 17008351 (Version 1)
Quarter: 2019Q4

REPORT INFORMATION
  Report Type: Spontaneous
  Country: IE (occurrence: IE)
  Receive Date: 20191108
  Receipt Date: 20191108
  Transmission Date: 20200122
  Serious: Yes (Hospitalization, Other)
  Sender: FDA-Public Use
  Company Number: IE-AMGEN-IRLSP2019184626

PATIENT
  Age: 82 Year
  Sex: Female

DRUGS (1)
  1. ENBREL [Suspect]
     Active Substance: ETANERCEPT
     Indication: RHEUMATOID ARTHRITIS
     Dosage: 50 MILLIGRAM
     Route: 058
     Dates: start: 20190514, end: 20190911

REACTIONS (4)
  - Malaise [Unknown]
  - Confusional state [Unknown]
  - Urinary tract infection [Unknown]
  - Lower respiratory tract infection [Unknown]
